FAERS Safety Report 15637762 (Version 1)
Quarter: 2018Q4

REPORT INFORMATION
  Report Type: Spontaneous
  Country: US (occurrence: US)
  Receive Date: 20181120
  Receipt Date: 20181120
  Transmission Date: 20190205
  Serious: No
  Sender: FDA-Public Use
  Company Number: US-JNJFOC-20180626498

PATIENT
  Sex: Male

DRUGS (8)
  1. IMBRUVICA [Suspect]
     Active Substance: IBRUTINIB
     Indication: EXTRANODAL MARGINAL ZONE B-CELL LYMPHOMA (MALT TYPE)
     Route: 065
     Dates: start: 20160328, end: 201711
  2. ANAPROX [Concomitant]
     Active Substance: NAPROXEN SODIUM
  3. IMBRUVICA [Suspect]
     Active Substance: IBRUTINIB
     Indication: EXTRANODAL MARGINAL ZONE B-CELL LYMPHOMA (MALT TYPE)
     Route: 065
     Dates: start: 20180405
  4. HYDROCODONE [Concomitant]
     Active Substance: HYDROCODONE
  5. LATANOPROST. [Concomitant]
     Active Substance: LATANOPROST
  6. WARFARIN [Concomitant]
     Active Substance: WARFARIN
  7. METOPROLOL. [Concomitant]
     Active Substance: METOPROLOL
  8. ALFUZOSIN [Concomitant]
     Active Substance: ALFUZOSIN

REACTIONS (1)
  - Atrial fibrillation [Unknown]
